FAERS Safety Report 25913965 (Version 3)
Quarter: 2025Q4

REPORT INFORMATION
  Report Type: Spontaneous
  Country: CN (occurrence: CN)
  Receive Date: 20251013
  Receipt Date: 20251106
  Transmission Date: 20260118
  Serious: Yes (Hospitalization)
  Sender: TEVA
  Company Number: CN-TEVA-VS-3380302

PATIENT
  Age: 53 Year
  Sex: Female
  Weight: 61 kg

DRUGS (9)
  1. BENDAMUSTINE [Suspect]
     Active Substance: BENDAMUSTINE
     Indication: Follicular lymphoma
     Dosage: CYCLE 1-6 , DAY 1 AND 2
     Route: 042
     Dates: start: 20250814, end: 20250911
  2. EPCORITAMAB [Suspect]
     Active Substance: EPCORITAMAB
     Indication: Follicular lymphoma
     Route: 065
  3. RITUXIMAB [Suspect]
     Active Substance: RITUXIMAB
     Indication: Follicular lymphoma
     Dosage: CYCLE 1-6 (ON DAY 1) OF EACH 28-DAY CYCLE
     Route: 042
     Dates: start: 20250814, end: 20250911
  4. IBUPROFEN [Concomitant]
     Active Substance: IBUPROFEN
     Indication: Headache
     Dosage: TIME INTERVAL: AS NECESSARY: SUSTAINED RELEASE CAPSULES
     Dates: start: 2018
  5. ACETAMINOPHEN [Concomitant]
     Active Substance: ACETAMINOPHEN
     Indication: Headache
     Dosage: TIME INTERVAL: AS NECESSARY: SUSTAINED RELEASE TABLETS
     Dates: start: 2018
  6. URSODIOL [Concomitant]
     Active Substance: URSODIOL
     Indication: Cholecystitis
     Dates: start: 20250604
  7. OTILONIUM BROMIDE [Concomitant]
     Active Substance: OTILONIUM BROMIDE
     Indication: Cholecystitis
     Dosage: TIME INTERVAL: 0.33333333 DAYS
     Dates: start: 20250604
  8. ENTECAVIR [Concomitant]
     Active Substance: ENTECAVIR
     Indication: Infection prophylaxis
     Dates: start: 20250716
  9. SULFAMETHOXAZOLE [Concomitant]
     Active Substance: SULFAMETHOXAZOLE
     Indication: Pneumonia
     Dosage: TIME INTERVAL: TOTAL
     Dates: start: 20250912

REACTIONS (1)
  - Febrile infection [Recovered/Resolved]

NARRATIVE: CASE EVENT DATE: 20250929
